FAERS Safety Report 23879732 (Version 1)
Quarter: 2024Q2

REPORT INFORMATION
  Report Type: Report from Study
  Country: CA (occurrence: CA)
  Receive Date: 20240521
  Receipt Date: 20240521
  Transmission Date: 20240716
  Serious: Yes (Other)
  Sender: FDA-Public Use
  Company Number: CA-OTSUKA-2023_016569

PATIENT
  Age: 37 Year
  Sex: Female

DRUGS (2)
  1. TOLVAPTAN [Suspect]
     Active Substance: TOLVAPTAN
     Indication: Congenital cystic kidney disease
     Dosage: 60 MG
     Route: 048
  2. TOLVAPTAN [Suspect]
     Active Substance: TOLVAPTAN
     Dosage: UNK (RESUMED)
     Route: 065

REACTIONS (7)
  - Abortion spontaneous [Unknown]
  - Maternal exposure during pregnancy [Unknown]
  - Dyspepsia [Unknown]
  - Nocturia [Unknown]
  - Thirst [Unknown]
  - Alanine aminotransferase decreased [Not Recovered/Not Resolved]
  - Aspartate aminotransferase decreased [Recovered/Resolved]

NARRATIVE: CASE EVENT DATE: 20230530
